FAERS Safety Report 4595973-0 (Version None)
Quarter: 2005Q1

REPORT INFORMATION
  Report Type: 
  Country: None (occurrence: None)
  Receive Date: 20050224
  Receipt Date: 20050207
  Transmission Date: 20050727
  Serious: Yes (Life-Threatening, Hospitalization, Disabling)
  Sender: FDA-Public Use
  Company Number: EWC050242484

PATIENT
  Age: 59 Year
  Sex: Male
  Weight: 60 kg

DRUGS (5)
  1. ALIMTA [Suspect]
     Indication: MALIGNANT MELANOMA
     Dosage: 500MG/M2 OTHER
     Route: 050
     Dates: start: 20041027
  2. CARBOPLATIN [Suspect]
     Indication: MESOTHELIOMA MALIGNANT
     Dates: start: 20041027
  3. FOLIC ACID [Concomitant]
  4. MIXTARD HUMAN 70/30 [Concomitant]
  5. SPIRALEXA (ESCITALOPRAM) [Concomitant]

REACTIONS (5)
  - C-REACTIVE PROTEIN INCREASED [None]
  - EMPYEMA [None]
  - GENERAL PHYSICAL HEALTH DETERIORATION [None]
  - VENTRICULAR DYSKINESIA [None]
  - WHITE BLOOD CELL COUNT INCREASED [None]
